FAERS Safety Report 15331392 (Version 1)
Quarter: 2018Q4

REPORT INFORMATION
  Report Type: Spontaneous
  Country: ES (occurrence: ES)
  Receive Date: 20180829
  Receipt Date: 20180829
  Transmission Date: 20190204
  Serious: Yes (Other)
  Sender: FDA-Public Use
  Company Number: ES-TEVA-2018-ES-948884

PATIENT
  Age: 77 Year
  Sex: Male

DRUGS (5)
  1. ENALAPRIL 5 MG 60 COMPRIMIDOS [Concomitant]
     Active Substance: ENALAPRIL
     Indication: HYPERTENSION
     Dosage: 20 MILLIGRAM DAILY; 2/24H
     Route: 048
     Dates: start: 20140120
  2. OMEPRAZOL 40 MG 28 C?PSULAS [Concomitant]
     Active Substance: OMEPRAZOLE SODIUM
     Indication: OESOPHAGITIS
     Dosage: 40 MILLIGRAM DAILY; 1/24H
     Route: 048
  3. CITALOPRAM RATIOPHARM 20 MG COMPRIMIDOS RECUBIERTOS CON PELICULA EFG , [Suspect]
     Active Substance: CITALOPRAM HYDROBROMIDE
     Indication: DEPRESSION
     Dosage: 20 MILLIGRAM DAILY; 1/24H
     Route: 048
     Dates: start: 20180105, end: 20180730
  4. LORAZEPAM (1864A) [Concomitant]
     Active Substance: LORAZEPAM
     Indication: DEPRESSION
     Dosage: 1/12H
     Route: 048
     Dates: start: 20150422
  5. RIVASTIGMINA (1075A) [Suspect]
     Active Substance: RIVASTIGMINE
     Indication: COGNITIVE DISORDER
     Dosage: 1 DOSAGE FORMS DAILY; RIVASTIGMINE 4.6 ONE PATCH PER DAY FOR 1 MONTH, THEN RIVASTIGMINE 9.51 ONE PAT
     Route: 062
     Dates: start: 20180604

REACTIONS (5)
  - Asthenia [Unknown]
  - Hyponatraemia [Recovered/Resolved]
  - Dizziness [Recovered/Resolved]
  - Gait disturbance [Recovered/Resolved]
  - Disorientation [Recovered/Resolved]

NARRATIVE: CASE EVENT DATE: 201807
